FAERS Safety Report 23640045 (Version 1)
Quarter: 2024Q1

REPORT INFORMATION
  Report Type: Spontaneous
  Country: DE (occurrence: DE)
  Receive Date: 20240317
  Receipt Date: 20240317
  Transmission Date: 20240410
  Serious: Yes (Other)
  Sender: FDA-Public Use
  Company Number: DE-002147023-NVSC2024DE057164

PATIENT

DRUGS (3)
  1. IMATINIB [Suspect]
     Active Substance: IMATINIB
     Indication: Myelodysplastic syndrome
     Dosage: 400 MG, QD
     Route: 065
     Dates: start: 20091217, end: 201011
  2. IMATINIB [Suspect]
     Active Substance: IMATINIB
     Dosage: 100 MG, QD
     Route: 065
     Dates: start: 201011, end: 201301
  3. IMATINIB [Suspect]
     Active Substance: IMATINIB
     Dosage: 100 MG, TIW
     Route: 065
     Dates: start: 201301

REACTIONS (1)
  - Bone marrow failure [Not Recovered/Not Resolved]
